FAERS Safety Report 10366964 (Version 1)
Quarter: 2014Q3

REPORT INFORMATION
  Report Type: Spontaneous
  Country: SK (occurrence: SK)
  Receive Date: 20140807
  Receipt Date: 20140807
  Transmission Date: 20150326
  Serious: Yes (Life-Threatening, Other)
  Sender: FDA-Public Use
  Company Number: SK-ROCHE-1445640

PATIENT
  Age: 38 Year
  Sex: Male

DRUGS (3)
  1. ENDOXAN [Concomitant]
     Active Substance: CYCLOPHOSPHAMIDE
  2. MABTHERA [Suspect]
     Active Substance: RITUXIMAB
     Indication: B-CELL LYMPHOMA
     Route: 065
     Dates: start: 201308
  3. FLUDARA [Concomitant]
     Active Substance: FLUDARABINE PHOSPHATE

REACTIONS (2)
  - Anaphylactic shock [Recovered/Resolved]
  - Weight decreased [Unknown]
